FAERS Safety Report 21022017 (Version 1)
Quarter: 2022Q2

REPORT INFORMATION
  Report Type: Spontaneous
  Country: US (occurrence: None)
  Receive Date: 20220628
  Receipt Date: 20220628
  Transmission Date: 20220721
  Serious: Yes (Hospitalization)
  Sender: FDA-Public Use
  Company Number: None

PATIENT
  Sex: Female

DRUGS (2)
  1. INGREZZA [Suspect]
     Active Substance: VALBENAZINE
     Indication: Tardive dyskinesia
     Dosage: IN THE AM
     Route: 048
     Dates: start: 20220603
  2. INGREZZA [Concomitant]
     Active Substance: VALBENAZINE

REACTIONS (2)
  - Pneumonia [None]
  - Therapy interrupted [None]
